FAERS Safety Report 6261416-4 (Version None)
Quarter: 2009Q3

REPORT INFORMATION
  Report Type: 
  Country: None (occurrence: None)
  Receive Date: 20090709
  Receipt Date: 20090630
  Transmission Date: 20100115
  Serious: Yes (Hospitalization)
  Sender: FDA-Public Use
  Company Number: KR-ASTRAZENECA-2009SE03906

PATIENT
  Age: 22562 Day
  Sex: Male
  Weight: 68 kg

DRUGS (5)
  1. IRESSA [Suspect]
     Indication: NON-SMALL CELL LUNG CANCER
     Route: 048
     Dates: start: 20040612, end: 20040722
  2. IRESSA [Suspect]
     Route: 048
     Dates: start: 20040730, end: 20040731
  3. GEMZAR [Concomitant]
     Dates: start: 20040119, end: 20040306
  4. CARBOPLATIN [Concomitant]
     Dates: start: 20040119, end: 20040507
  5. TAXOTERE [Concomitant]
     Dates: start: 20040330, end: 20040507

REACTIONS (1)
  - HAEMOPTYSIS [None]
